FAERS Safety Report 4983560-1 (Version None)
Quarter: 2006Q2

REPORT INFORMATION
  Report Type: 
  Country: None (occurrence: None)
  Receive Date: 20060425
  Receipt Date: 20060425
  Transmission Date: 20061013
  Serious: Yes (Other)
  Sender: FDA-Public Use
  Company Number: None

PATIENT
  Age: 60 Year
  Sex: Male
  Weight: 112.9 kg

DRUGS (9)
  1. TERAZOSIN HCL [Suspect]
  2. FUROSEMIDE [Concomitant]
  3. FINASTERIDE [Concomitant]
  4. GABAPENTIN [Concomitant]
  5. GLYBURIDE [Concomitant]
  6. NIACIN (NIASPAN-KOS) [Concomitant]
  7. METOPROLOL TARTRATE [Concomitant]
  8. AMOXICILLIN [Concomitant]
  9. NITROGLYCERIN [Concomitant]

REACTIONS (1)
  - CHEST PAIN [None]
